FAERS Safety Report 9511926 (Version 1)
Quarter: 2013Q3

REPORT INFORMATION
  Report Type: Spontaneous
  Country: IT (occurrence: IT)
  Receive Date: 20130910
  Receipt Date: 20130910
  Transmission Date: 20140515
  Serious: Yes (Other)
  Sender: FDA-Public Use
  Company Number: IT-JNJFOC-20130902411

PATIENT
  Age: 81 Year
  Sex: Female

DRUGS (6)
  1. RISPERDAL [Suspect]
     Indication: AGGRESSION
     Route: 048
     Dates: start: 20130829, end: 20130831
  2. RISPERDAL [Suspect]
     Indication: DEPRESSION
     Route: 048
     Dates: start: 20130829, end: 20130831
  3. DELORAZEPAM [Suspect]
     Indication: AGGRESSION
     Route: 048
     Dates: start: 20130829, end: 20130831
  4. DELORAZEPAM [Suspect]
     Indication: DEPRESSION
     Route: 048
     Dates: start: 20130829, end: 20130831
  5. DEPAKIN [Concomitant]
     Indication: PRODUCT USED FOR UNKNOWN INDICATION
     Route: 065
     Dates: start: 20130816, end: 20130831
  6. PAROXETINE [Concomitant]
     Indication: PRODUCT USED FOR UNKNOWN INDICATION
     Route: 065
     Dates: start: 20130816, end: 20130831

REACTIONS (3)
  - Hyponatraemia [Recovering/Resolving]
  - Dysstasia [Recovering/Resolving]
  - Sopor [Recovering/Resolving]
